FAERS Safety Report 8667537 (Version 2)
Quarter: 2012Q4

REPORT INFORMATION
  Report Type: 
  Country: JP (occurrence: JP)
  Receive Date: 20120717
  Receipt Date: 20120828
  Transmission Date: 20130627
  Serious: Yes (Hospitalization)
  Sender: FDA-Public Use
  Company Number: JP-009507513-2012SP036334

PATIENT
  Age: 53 Year
  Sex: Male

DRUGS (3)
  1. UNSPECIFIED INGREDIENT [Suspect]
     Route: 048
  2. REBETOL [Suspect]
     Indication: HEPATITIS C
     Dosage: Daily dosage unknown
     Route: 048
  3. INTRON A [Suspect]
     Indication: HEPATITIS C
     Dosage: Daily dosage unknown
     Route: 030

REACTIONS (2)
  - Anaemia haemolytic autoimmune [Recovering/Resolving]
  - Anaemia haemolytic autoimmune [Recovering/Resolving]
